FAERS Safety Report 13494178 (Version 1)
Quarter: 2017Q2

REPORT INFORMATION
  Report Type: Spontaneous
  Country: IE (occurrence: IE)
  Receive Date: 20170428
  Receipt Date: 20170428
  Transmission Date: 20170830
  Serious: Yes (Hospitalization)
  Sender: FDA-Public Use
  Company Number: IE-BAXTER-2017BAX013679

PATIENT
  Age: 32 Year
  Sex: Female
  Weight: 49 kg

DRUGS (4)
  1. SODIUM CHLORIDE INTRAVENOUS INFUSION BP 0.9% W/V [Suspect]
     Active Substance: SODIUM CHLORIDE
     Indication: MEDICATION DILUTION
     Dosage: APPROX. INFUSION TIME 30 MINS
     Route: 042
     Dates: start: 20170302, end: 20170323
  2. MEROPENEM. [Suspect]
     Active Substance: MEROPENEM
     Indication: OSTEOMYELITIS ACUTE
     Dosage: APPROX. INFUSION TIME 30 MINS
     Route: 042
     Dates: start: 20170302, end: 20170323
  3. WATER FOR INJECTION [Suspect]
     Active Substance: WATER
     Indication: MEDICATION DILUTION
     Dosage: APPROX. INFUSION TIME 30 MINS
     Route: 042
     Dates: start: 20170302, end: 20170323
  4. TAZOCIN [Concomitant]
     Active Substance: PIPERACILLIN SODIUM\TAZOBACTAM SODIUM
     Indication: PRODUCT USED FOR UNKNOWN INDICATION
     Route: 065

REACTIONS (1)
  - Pyrexia [Recovered/Resolved]

NARRATIVE: CASE EVENT DATE: 20170321
